FAERS Safety Report 5695917-4 (Version None)
Quarter: 2008Q2

REPORT INFORMATION
  Report Type: 
  Country: None (occurrence: None)
  Receive Date: 20080407
  Receipt Date: 20080404
  Transmission Date: 20081010
  Serious: Yes (Other)
  Sender: FDA-Public Use
  Company Number: A0705980A

PATIENT
  Age: 28 Year
  Sex: Female
  Weight: 81.8 kg

DRUGS (1)
  1. ALLI [Suspect]
     Indication: WEIGHT LOSS DIET
     Route: 048
     Dates: start: 20080120, end: 20080402

REACTIONS (6)
  - DEHYDRATION [None]
  - DIARRHOEA [None]
  - HEADACHE [None]
  - RECTAL DISCHARGE [None]
  - THIRST [None]
  - VAGINAL HAEMORRHAGE [None]
